FAERS Safety Report 14185228 (Version 9)
Quarter: 2020Q1

REPORT INFORMATION
  Report Type: Spontaneous
  Country: GB (occurrence: GB)
  Receive Date: 20171113
  Receipt Date: 20200103
  Transmission Date: 20200409
  Serious: Yes (Other)
  Sender: FDA-Public Use
  Company Number: GB-MYLANLABS-2017M1013810

PATIENT
  Age: 51 Year
  Sex: Male

DRUGS (3)
  1. CLOZARIL [Suspect]
     Active Substance: CLOZAPINE
     Indication: SCHIZOPHRENIA
     Dosage: UNK
     Route: 048
     Dates: start: 19940913
  2. CLOZARIL [Suspect]
     Active Substance: CLOZAPINE
     Dosage: UNK
     Route: 048
     Dates: start: 20010701
  3. CLOZARIL [Suspect]
     Active Substance: CLOZAPINE
     Dosage: 850 MILLIGRAM, QD
     Route: 048
     Dates: start: 2017

REACTIONS (3)
  - Mean cell haemoglobin concentration decreased [Unknown]
  - Platelet count increased [Recovering/Resolving]
  - Eosinophil count decreased [Unknown]

NARRATIVE: CASE EVENT DATE: 20170223
